FAERS Safety Report 5919118-7 (Version None)
Quarter: 2008Q4

REPORT INFORMATION
  Report Type: 
  Country: None (occurrence: None)
  Receive Date: 20081014
  Receipt Date: 20081014
  Transmission Date: 20090506
  Serious: Yes (Hospitalization)
  Sender: FDA-Public Use
  Company Number: None

PATIENT
  Sex: Male
  Weight: 79.8 kg

DRUGS (2)
  1. RAPAMYCIN [Suspect]
     Indication: MESOTHELIOMA
     Dosage: 35MG WEEKLY PO
     Route: 048
     Dates: start: 20080611, end: 20080910
  2. GRAPEFRUIT JUICE [Suspect]
     Indication: MESOTHELIOMA
     Dosage: 8 OZ DAILY PO
     Route: 048
     Dates: start: 20080617, end: 20080910

REACTIONS (4)
  - ORTHOSTATIC HYPOTENSION [None]
  - OXYGEN SATURATION DECREASED [None]
  - PERICARDIAL EFFUSION [None]
  - TACHYCARDIA [None]
